FAERS Safety Report 8989853 (Version 1)
Quarter: 2012Q4

REPORT INFORMATION
  Report Type: Report from Study
  Country: CA (occurrence: CA)
  Receive Date: 20121228
  Receipt Date: 20121228
  Transmission Date: 20130627
  Serious: Yes (Other)
  Sender: FDA-Public Use
  Company Number: CA-JNJFOC-20121211623

PATIENT
  Age: 54 None
  Sex: Female
  Weight: 82 kg

DRUGS (11)
  1. REMICADE [Suspect]
     Indication: RHEUMATOID ARTHRITIS
     Route: 042
     Dates: start: 20120604
  2. PREDNISONE [Concomitant]
     Route: 065
  3. DOMPERIDONE [Concomitant]
     Route: 065
  4. DEXILANT [Concomitant]
     Route: 065
  5. ZOPICLONE [Concomitant]
     Dosage: HS (hour of sleep)
     Route: 065
  6. COVERSYL [Concomitant]
     Route: 065
  7. PRAVASTATIN [Concomitant]
     Route: 065
  8. DILTIAZEM [Concomitant]
     Route: 065
  9. LASIX [Concomitant]
     Route: 065
  10. PRISTIQ [Concomitant]
     Route: 065
  11. CELEBREX [Concomitant]
     Dosage: when required (PRN)
     Route: 065

REACTIONS (2)
  - Fungal infection [Recovering/Resolving]
  - Musculoskeletal chest pain [Unknown]
